FAERS Safety Report 24532200 (Version 2)
Quarter: 2024Q4

REPORT INFORMATION
  Report Type: Spontaneous
  Country: AT (occurrence: AT)
  Receive Date: 20241022
  Receipt Date: 20241110
  Transmission Date: 20250115
  Serious: Yes (Life-Threatening, Hospitalization, Other)
  Sender: ACCORD
  Company Number: None

PATIENT
  Age: 5 Year
  Sex: Male

DRUGS (20)
  1. METHOTREXATE [Suspect]
     Active Substance: METHOTREXATE
     Indication: B precursor type acute leukaemia
     Dosage: MAINTENANCE: 0.5-0.7 MG/KG ONCE WEEKLY
     Dates: start: 2015, end: 2015
  2. VORICONAZOLE [Suspect]
     Active Substance: VORICONAZOLE
     Indication: Mucormycosis
     Dosage: 8 MG/KG, QD
     Dates: start: 20150317, end: 20150402
  3. AMPHOTERICIN B [Suspect]
     Active Substance: AMPHOTERICIN B
     Indication: Pulmonary mucormycosis
     Dosage: 5 MG/KG/DAY EVERY 3RD DAY
     Dates: start: 201604
  4. AMPHOTERICIN B [Suspect]
     Active Substance: AMPHOTERICIN B
     Indication: Systemic mycosis
     Dosage: 10 MG/KG
     Route: 042
     Dates: start: 201504, end: 201505
  5. DEXAMETHASONE [Suspect]
     Active Substance: DEXAMETHASONE
     Indication: B precursor type acute leukaemia
     Dosage: 3 WEEKS OF RESTARTED STEROID THERAPY IN PROTOCOL IIA WITH DEXAMETHASONE (10 MG/M2 DAILY)
     Dates: start: 2015, end: 2015
  6. CASPOFUNGIN [Suspect]
     Active Substance: CASPOFUNGIN
     Indication: Antifungal treatment
     Dates: start: 20150220, end: 20150312
  7. ASPARAGINASE [Suspect]
     Active Substance: ASPARAGINASE
     Indication: B precursor type acute leukaemia
  8. MERCAPTOPURINE [Suspect]
     Active Substance: MERCAPTOPURINE
     Indication: B precursor type acute leukaemia
     Dosage: 1.5 MG/KG DAILY, MAINTENANCE
  9. POSACONAZOLE [Suspect]
     Active Substance: POSACONAZOLE
     Indication: Pulmonary mucormycosis
     Dosage: 20 MG/KG, QD
     Dates: start: 201604, end: 201605
  10. CEFTAZIDIME [Concomitant]
     Active Substance: CEFTAZIDIME
     Indication: Lung infiltration
  11. MERCAPTOPURINE [Concomitant]
     Active Substance: MERCAPTOPURINE
     Dosage: 1.5 MG/KG, DAILY
     Dates: start: 201504, end: 201505
  12. METHOTREXATE [Concomitant]
     Active Substance: METHOTREXATE
     Dosage: UNK (0.5-0.7 MG/KG ONCE WEEKLY)
     Dates: start: 201504, end: 201505
  13. LINEZOLID [Concomitant]
     Active Substance: LINEZOLID
     Indication: Lung infiltration
  14. AMBISOME [Concomitant]
     Active Substance: AMPHOTERICIN B
     Indication: Mucormycosis
     Dosage: 10 MG/KG (INCREASED TO 10 MG/KG)
  15. VORICONAZOLE [Concomitant]
     Active Substance: VORICONAZOLE
     Indication: Pulmonary mucormycosis
     Dosage: 8 MG/KG DAILY
  16. AMPHOTERICIN B [Suspect]
     Active Substance: AMPHOTERICIN B
     Indication: Systemic mycosis
     Dosage: 10 MG/KG
     Route: 042
     Dates: start: 201505
  17. AMPHOTERICIN B [Suspect]
     Active Substance: AMPHOTERICIN B
     Indication: Systemic mycosis
     Dosage: 5 MG/KG, QD EVERY THIRD DAY
     Route: 042
     Dates: start: 201503, end: 201504
  18. AMPHOTERICIN B [Suspect]
     Active Substance: AMPHOTERICIN B
     Indication: Systemic mycosis
     Dosage: 2.5 MG/KG, QD EVERY SECOND DAY
     Route: 042
  19. AMPHOTERICIN B [Suspect]
     Active Substance: AMPHOTERICIN B
     Indication: Systemic mycosis
     Dosage: 2.5 MG/KG, QD EVERY SECOND DAY
     Route: 042
  20. POSACONAZOLE [Suspect]
     Active Substance: POSACONAZOLE
     Indication: Pulmonary mucormycosis
     Dosage: 15 MG/KG, QD
     Dates: start: 201504, end: 201505

REACTIONS (5)
  - Treatment noncompliance [Unknown]
  - Drug ineffective [Unknown]
  - Hypokalaemia [Unknown]
  - Pulmonary mucormycosis [Recovered/Resolved]
  - Aspergillus infection [Recovering/Resolving]

NARRATIVE: CASE EVENT DATE: 20150101
